FAERS Safety Report 5009027-2 (Version None)
Quarter: 2006Q2

REPORT INFORMATION
  Report Type: 
  Country: None (occurrence: None)
  Receive Date: 20060518
  Receipt Date: 20060508
  Transmission Date: 20061013
  Serious: Yes (Other)
  Sender: FDA-Public Use
  Company Number: HQWYE222008MAY06

PATIENT
  Age: 81 Year
  Sex: Female

DRUGS (5)
  1. INDERAL [Suspect]
     Indication: HYPERTENSION
     Dosage: 80 MG 1X PER 1 DAY
     Route: 048
     Dates: start: 20060130, end: 20060405
  2. VERAPAMIL [Suspect]
     Indication: HYPERTENSION
     Dosage: 160 MG 2X PER 1 DAY
     Route: 048
  3. FUROSEMIDE [Concomitant]
  4. CARBIMAZOLE (CARBIMAZOLE) [Concomitant]
  5. TRAVATAN [Concomitant]

REACTIONS (6)
  - BRADYCARDIA [None]
  - DIZZINESS [None]
  - DRUG INTERACTION [None]
  - HYPOTENSION [None]
  - MUSCULAR WEAKNESS [None]
  - PALPITATIONS [None]
